FAERS Safety Report 12298006 (Version 3)
Quarter: 2016Q2

REPORT INFORMATION
  Report Type: Spontaneous
  Country: US (occurrence: US)
  Receive Date: 20160422
  Receipt Date: 20160530
  Transmission Date: 20160815
  Serious: Yes (Other)
  Sender: FDA-Public Use
  Company Number: US-ASTRAZENECA-2016SE41928

PATIENT
  Age: 686 Month
  Sex: Female

DRUGS (15)
  1. FASLODEX [Suspect]
     Active Substance: FULVESTRANT
     Dosage: 500.0MG UNKNOWN
     Route: 030
     Dates: start: 201505
  2. OSTEO BIFLEX [Concomitant]
     Active Substance: CHONDROITIN SULFATE A\GLUCOSAMINE
     Route: 048
  3. CENTRUM SILVER [Concomitant]
     Active Substance: MINERALS\VITAMINS
     Route: 048
  4. EFFEXOR XR [Suspect]
     Active Substance: VENLAFAXINE HYDROCHLORIDE
     Route: 065
  5. TOPROL XL [Concomitant]
     Active Substance: METOPROLOL SUCCINATE
     Route: 048
  6. MICROZIDE [Concomitant]
     Active Substance: HYDROCHLOROTHIAZIDE
     Dosage: 12.5MG UNKNOWN
     Route: 048
  7. DENOSUMAB [Concomitant]
     Active Substance: DENOSUMAB
     Dosage: 120.0MG UNKNOWN
     Route: 058
  8. EFFEXOR XR [Suspect]
     Active Substance: VENLAFAXINE HYDROCHLORIDE
     Route: 048
  9. VOLTAREN [Concomitant]
     Active Substance: DICLOFENAC SODIUM
     Dosage: 75.0MG UNKNOWN
  10. FASLODEX [Suspect]
     Active Substance: FULVESTRANT
     Dosage: 500.0MG UNKNOWN
     Route: 030
     Dates: start: 201505
  11. LISINOPRIL. [Suspect]
     Active Substance: LISINOPRIL
     Dosage: TAKE 5 MG BY MOUTH DAILY
     Route: 048
  12. XGEVA [Concomitant]
     Active Substance: DENOSUMAB
     Dates: start: 201505
  13. AROMASIN [Suspect]
     Active Substance: EXEMESTANE
     Route: 065
  14. TYLENOL [Concomitant]
     Active Substance: ACETAMINOPHEN
     Dosage: TAKE 1 ,000 MG BY MOUTH EVERY 6 (SIX) HOURS AS NEEDED
     Route: 048
  15. CALCIUM [Concomitant]
     Active Substance: CALCIUM

REACTIONS (10)
  - Metastases to bone [Unknown]
  - Urinary incontinence [Unknown]
  - Sleep apnoea syndrome [Unknown]
  - Pulmonary mass [Unknown]
  - Metastases to lymph nodes [Unknown]
  - Vitamin D deficiency [Unknown]
  - Aortic aneurysm [Unknown]
  - Breast cancer female [Unknown]
  - Arthralgia [Unknown]
  - Obesity [Unknown]

NARRATIVE: CASE EVENT DATE: 201104
